FAERS Safety Report 21890690 (Version 1)
Quarter: 2023Q1

REPORT INFORMATION
  Report Type: Other
  Country: ES (occurrence: ES)
  Receive Date: 20230120
  Receipt Date: 20230120
  Transmission Date: 20230417
  Serious: Yes (Hospitalization)
  Sender: FDA-Public Use
  Company Number: ES-MPL-000001

PATIENT
  Age: 82 Year
  Sex: Male

DRUGS (2)
  1. ROPINIROLE [Suspect]
     Active Substance: ROPINIROLE
     Indication: Parkinson^s disease
     Route: 065
  2. CARBIDOPA\LEVODOPA [Suspect]
     Active Substance: CARBIDOPA\LEVODOPA
     Indication: Parkinson^s disease
     Route: 065

REACTIONS (4)
  - Suicide attempt [Unknown]
  - Hallucination, visual [Unknown]
  - Jealous delusion [Unknown]
  - Intentional overdose [Unknown]
